FAERS Safety Report 7575315-9 (Version None)
Quarter: 2011Q2

REPORT INFORMATION
  Report Type: 
  Country: None (occurrence: None)
  Receive Date: 20110627
  Receipt Date: 20110615
  Transmission Date: 20111010
  Serious: Yes (Hospitalization, Other)
  Sender: FDA-Public Use
  Company Number: US-ELI_LILLY_AND_COMPANY-US201106005146

PATIENT
  Sex: Female

DRUGS (4)
  1. FORTEO [Suspect]
     Indication: OSTEOPOROSIS
     Dosage: 20 UG, QD
     Dates: start: 20110510, end: 20110610
  2. BELLADONNA HERB [Concomitant]
  3. LEVOXYL [Concomitant]
  4. TRAMADOL HCL [Concomitant]

REACTIONS (8)
  - CARDIAC DISORDER [None]
  - NAUSEA [None]
  - DYSPNOEA [None]
  - MALAISE [None]
  - JOINT SWELLING [None]
  - ARRHYTHMIA [None]
  - ASTHENIA [None]
  - FATIGUE [None]
